FAERS Safety Report 7941734-1 (Version None)
Quarter: 2011Q4

REPORT INFORMATION
  Report Type: 
  Country: None (occurrence: None)
  Receive Date: 20111122
  Receipt Date: 20111122
  Transmission Date: 20120403
  Serious: Yes (Hospitalization)
  Sender: FDA-Public Use
  Company Number: None

PATIENT
  Age: 62 Year
  Sex: Male
  Weight: 123.8 kg

DRUGS (2)
  1. LISINOPRIL [Suspect]
     Indication: HYPERTENSION
     Dosage: 40 MG EVERY DAY PO
     Route: 048
     Dates: start: 20020126, end: 20110714
  2. GABAPENTIN [Suspect]
     Indication: PAIN
     Dosage: 600 MG TID PO
     Route: 048
     Dates: start: 20100527, end: 20110714

REACTIONS (2)
  - ANGIOEDEMA [None]
  - THERAPY CESSATION [None]
